FAERS Safety Report 4603214-0 (Version None)
Quarter: 2005Q1

REPORT INFORMATION
  Report Type: 
  Country: None (occurrence: None)
  Receive Date: 20050307
  Receipt Date: 20050222
  Transmission Date: 20050727
  Serious: Yes (Death, Hospitalization)
  Sender: FDA-Public Use
  Company Number: 2005037382

PATIENT
  Age: 76 Year
  Sex: Female

DRUGS (6)
  1. PREDNISONE [Suspect]
     Indication: ILL-DEFINED DISORDER
     Dosage: 20 MG (INTERVAL: EVERY DAY), ORAL
     Route: 048
     Dates: start: 20040831
  2. LIPOSOMAL FORMULATION OF DOXORUBICIN (LIPOSOMAL FORMULATION OF DOXORUB [Suspect]
     Indication: MULTIPLE MYELOMA
     Dosage: 30 MG (INTERVAL: EVERY DAY), INTRAVENOUS
     Route: 042
     Dates: start: 20040901
  3. MORPHINE [Suspect]
     Indication: ILL-DEFINED DISORDER
     Dosage: ORAL
     Route: 048
     Dates: start: 20040830, end: 20040910
  4. DEXAMETHASONE [Suspect]
     Indication: MULTIPLE MYELOMA
     Dosage: 40 MG (INTERVAL: EVERY DAY), ORAL
     Route: 048
     Dates: start: 20040901, end: 20040912
  5. THALIDOMIDE (THALIDOMIDE) [Suspect]
     Indication: MULTIPLE MYELOMA
     Dosage: 200 MG (INTERVAL: EVERY DAY), ORAL
     Route: 048
     Dates: start: 20040830
  6. ACENOCOUMAROL (ACENOCOUMAROL) [Suspect]
     Indication: ILL-DEFINED DISORDER
     Dosage: ORAL
     Route: 048
     Dates: start: 20040904, end: 20040909

REACTIONS (5)
  - CARDIO-RESPIRATORY ARREST [None]
  - LUNG DISORDER [None]
  - MENTAL IMPAIRMENT [None]
  - PANCYTOPENIA [None]
  - PSEUDOMONAL SEPSIS [None]
